FAERS Safety Report 8193081-3 (Version None)
Quarter: 2012Q1

REPORT INFORMATION
  Report Type: 
  Country: None (occurrence: None)
  Receive Date: 20120308
  Receipt Date: 20120229
  Transmission Date: 20120608
  Serious: Yes (Other)
  Sender: FDA-Public Use
  Company Number: US-UCBSA-051012

PATIENT
  Age: 59 Year
  Sex: Female

DRUGS (2)
  1. KEPPRA [Suspect]
  2. KEPPRA [Suspect]
     Dates: start: 20050101

REACTIONS (2)
  - ROAD TRAFFIC ACCIDENT [None]
  - HERPES ZOSTER [None]
